FAERS Safety Report 5786018-5 (Version None)
Quarter: 2008Q2

REPORT INFORMATION
  Report Type: 
  Country: None (occurrence: None)
  Receive Date: 20080620
  Receipt Date: 20080620
  Transmission Date: 20081010
  Serious: Yes (Other)
  Sender: FDA-Public Use
  Company Number: None

PATIENT
  Age: 59 Year
  Sex: Female
  Weight: 89.3586 kg

DRUGS (1)
  1. LISINOPRIL [Suspect]
     Indication: HYPERTENSION
     Dosage: 10 MG EVERY MORNING PO
     Route: 048
     Dates: start: 20080423, end: 20080616

REACTIONS (9)
  - DRUG INEFFECTIVE [None]
  - DYSPEPSIA [None]
  - ERUCTATION [None]
  - FLATULENCE [None]
  - HYPOAESTHESIA [None]
  - MUSCLE SPASMS [None]
  - OSTEOARTHRITIS [None]
  - PARAESTHESIA [None]
  - PRURITUS GENERALISED [None]
